FAERS Safety Report 8198052-9 (Version None)
Quarter: 2012Q1

REPORT INFORMATION
  Report Type: 
  Country: None (occurrence: None)
  Receive Date: 20120309
  Receipt Date: 20120215
  Transmission Date: 20120608
  Serious: No
  Sender: FDA-Public Use
  Company Number: US-AMGEN-USASP2012008527

PATIENT
  Sex: Male

DRUGS (4)
  1. XGEVA [Suspect]
  2. XGEVA [Suspect]
     Indication: METASTASES TO BONE
     Dosage: UNK
  3. CALCIUM [Concomitant]
     Dosage: 2000 MG, UNK
  4. VITAMIN D [Concomitant]
     Dosage: 800 IU, UNK

REACTIONS (1)
  - HYPOCALCAEMIA [None]
